FAERS Safety Report 6480567-2 (Version None)
Quarter: 2009Q4

REPORT INFORMATION
  Report Type: 
  Country: None (occurrence: None)
  Receive Date: 20091208
  Receipt Date: 20091125
  Transmission Date: 20100525
  Serious: Yes (Life-Threatening, Other)
  Sender: FDA-Public Use
  Company Number: US-RB-019480-09

PATIENT
  Age: 32 Year
  Sex: Female

DRUGS (2)
  1. SUBOXONE [Suspect]
     Indication: DRUG USE FOR UNKNOWN INDICATION
     Dosage: DOSING INFORMATION UNKNOWN.  DOES NOT TAKE MEDICATION AS PRESCRIBED.
     Route: 065
  2. TYLENOL W/ CODEINE NO. 3 [Suspect]
     Indication: DRUG USE FOR UNKNOWN INDICATION
     Dosage: DOSING INFORMATION IS UNKNOWN.
     Route: 065

REACTIONS (9)
  - ASTHENIA [None]
  - CONSTIPATION [None]
  - DRUG DEPENDENCE [None]
  - DYSSTASIA [None]
  - EUPHORIC MOOD [None]
  - FLASHBACK [None]
  - HEADACHE [None]
  - NAUSEA [None]
  - SELF-INJURIOUS IDEATION [None]
